FAERS Safety Report 13422132 (Version 1)
Quarter: 2017Q2

REPORT INFORMATION
  Report Type: Spontaneous
  Country: US (occurrence: US)
  Receive Date: 20170410
  Receipt Date: 20170410
  Transmission Date: 20170830
  Serious: No
  Sender: FDA-Public Use
  Company Number: US-TEVA-757315ACC

PATIENT
  Age: 66 Year
  Sex: Female

DRUGS (12)
  1. ASPIRIN. [Concomitant]
     Active Substance: ASPIRIN
  2. COENZYME [Concomitant]
     Active Substance: UBIDECARENONE
  3. ATORVASTATIN [Concomitant]
     Active Substance: ATORVASTATIN
  4. COZAAR [Concomitant]
     Active Substance: LOSARTAN POTASSIUM
  5. NIFEDIPINE. [Concomitant]
     Active Substance: NIFEDIPINE
  6. VITAMIN B12 [Concomitant]
     Active Substance: CYANOCOBALAMIN
  7. GABAPENTIN. [Concomitant]
     Active Substance: GABAPENTIN
  8. COPAXONE [Suspect]
     Active Substance: GLATIRAMER ACETATE
     Indication: MULTIPLE SCLEROSIS
     Route: 058
  9. DOXYC [Concomitant]
  10. VITAMIN D3 [Concomitant]
     Active Substance: CHOLECALCIFEROL
  11. LOSARTAN. [Concomitant]
     Active Substance: LOSARTAN
  12. METHIMAZOLE. [Concomitant]
     Active Substance: METHIMAZOLE

REACTIONS (3)
  - Memory impairment [Unknown]
  - Dizziness [Unknown]
  - Hypertension [Unknown]

NARRATIVE: CASE EVENT DATE: 201703
